FAERS Safety Report 7507935-1 (Version None)
Quarter: 2011Q2

REPORT INFORMATION
  Report Type: 
  Country: None (occurrence: None)
  Receive Date: 20110527
  Receipt Date: 20110512
  Transmission Date: 20111010
  Serious: Yes (Other)
  Sender: FDA-Public Use
  Company Number: GB-JNJFOC-20110506431

PATIENT
  Sex: Female
  Weight: 72 kg

DRUGS (2)
  1. INFLIXIMAB, RECOMBINANT [Suspect]
     Indication: RHEUMATOID ARTHRITIS
     Route: 042
     Dates: start: 20061109, end: 20061221
  2. AZATHIOPRINE [Concomitant]
     Dates: start: 20061109

REACTIONS (1)
  - SKIN CANCER [None]
